FAERS Safety Report 10129839 (Version 1)
Quarter: 2014Q2

REPORT INFORMATION
  Report Type: Spontaneous
  Country: US (occurrence: US)
  Receive Date: 20140428
  Receipt Date: 20140428
  Transmission Date: 20141212
  Serious: No
  Sender: FDA-Public Use
  Company Number: US-TEVA-477265USA

PATIENT
  Age: 65 Year
  Sex: Male
  Weight: 93.07 kg

DRUGS (1)
  1. QNASL [Suspect]
     Route: 045

REACTIONS (2)
  - Nasal congestion [Unknown]
  - Dyspnoea [Unknown]
